FAERS Safety Report 17790347 (Version 1)
Quarter: 2020Q2

REPORT INFORMATION
  Report Type: Spontaneous
  Country: NL (occurrence: NL)
  Receive Date: 20200515
  Receipt Date: 20200515
  Transmission Date: 20200714
  Serious: Yes (Hospitalization)
  Sender: FDA-Public Use
  Company Number: NVSC2020NL075390

PATIENT
  Sex: Female
  Weight: 93 kg

DRUGS (5)
  1. AMOXICILLINE [Suspect]
     Active Substance: AMOXICILLIN
     Indication: PROPHYLAXIS
     Dosage: 500 MG, QD, ( CAPSULE 3 KEER PER DAG, 1)
     Route: 065
     Dates: start: 20191210, end: 20191210
  2. IBUPROFEN. [Concomitant]
     Active Substance: IBUPROFEN
     Indication: PRODUCT USED FOR UNKNOWN INDICATION
     Dosage: 200 MG
     Route: 065
  3. LAMOTRIGINE. [Concomitant]
     Active Substance: LAMOTRIGINE
     Indication: PRODUCT USED FOR UNKNOWN INDICATION
     Route: 065
  4. OXAZEPAM. [Concomitant]
     Active Substance: OXAZEPAM
     Indication: PRODUCT USED FOR UNKNOWN INDICATION
     Dosage: CAPSULE, 200 MG (MILLIGRAM)
     Route: 065
  5. AMOXICILLINE [Suspect]
     Active Substance: AMOXICILLIN
     Indication: RESPIRATORY TRACT INFECTION
     Dosage: 500 MG, QD CAPSULE, 500 MG (MILLIGRAM), KUUR VAN TANDARTS, 1
     Route: 065
     Dates: start: 20200127

REACTIONS (7)
  - Palpitations [Recovered/Resolved]
  - Hyponatraemia [Unknown]
  - Pruritus [Unknown]
  - Rash maculo-papular [Unknown]
  - Pyrexia [Recovered/Resolved]
  - Pyrexia [Unknown]
  - Diarrhoea [Recovered/Resolved]
